FAERS Safety Report 14846952 (Version 1)
Quarter: 2018Q2

REPORT INFORMATION
  Report Type: Other
  Country: SE (occurrence: SE)
  Receive Date: 20180504
  Receipt Date: 20180504
  Transmission Date: 20180711
  Serious: Yes (Other)
  Sender: FDA-Public Use
  Company Number: SE-ASTELLAS-2018US020996

PATIENT
  Sex: Female
  Weight: 55 kg

DRUGS (1)
  1. BETMIGA [Suspect]
     Active Substance: MIRABEGRON
     Indication: HYPERTONIC BLADDER
     Route: 065
     Dates: start: 20171222

REACTIONS (2)
  - Headache [Not Recovered/Not Resolved]
  - Bundle branch block [Not Recovered/Not Resolved]
